FAERS Safety Report 10239883 (Version 2)
Quarter: 2014Q2

REPORT INFORMATION
  Report Type: Spontaneous
  Country: US (occurrence: US)
  Receive Date: 20140616
  Receipt Date: 20140620
  Transmission Date: 20141212
  Serious: No
  Sender: FDA-Public Use
  Company Number: US-009507513-1405USA009861

PATIENT
  Age: 57 Year
  Sex: Female

DRUGS (9)
  1. PEGINTRON [Suspect]
     Indication: HEPATITIS C
     Dosage: 0.4 ML, QW, REDIPEN, ON SUNDAY NIGHTS AT 21:00
     Route: 058
     Dates: start: 201403
  2. REBETOL [Suspect]
     Dosage: UNK
     Route: 048
  3. SAVELLA [Concomitant]
  4. LEVEMIR [Concomitant]
  5. HUMULIN [Concomitant]
  6. OMEPRAZOLE [Concomitant]
  7. ASPIRIN [Concomitant]
  8. LOSARTAN POTASSIUM TABLETS [Concomitant]
  9. PRILOSEC [Concomitant]

REACTIONS (7)
  - Muscle spasms [Unknown]
  - Malaise [Unknown]
  - Fatigue [Not Recovered/Not Resolved]
  - Haemorrhage [Recovering/Resolving]
  - Wrong technique in drug usage process [Unknown]
  - Injury [Not Recovered/Not Resolved]
  - Product quality issue [Unknown]
